FAERS Safety Report 7506914-8 (Version None)
Quarter: 2011Q2

REPORT INFORMATION
  Report Type: 
  Country: None (occurrence: None)
  Receive Date: 20110526
  Receipt Date: 20110524
  Transmission Date: 20111010
  Serious: Yes (Death, Hospitalization)
  Sender: FDA-Public Use
  Company Number: PHFR2011GB03199

PATIENT
  Sex: Male

DRUGS (1)
  1. CLOZARIL [Suspect]
     Indication: SCHIZOPHRENIA
     Dosage: 600 MG
     Route: 048
     Dates: start: 20090825

REACTIONS (4)
  - LOWER RESPIRATORY TRACT INFECTION [None]
  - CARDIAC FAILURE [None]
  - PNEUMONIA [None]
  - MYOCARDIAL INFARCTION [None]
